FAERS Safety Report 6237287-9 (Version None)
Quarter: 2009Q2

REPORT INFORMATION
  Report Type: 
  Country: None (occurrence: None)
  Receive Date: 20090619
  Receipt Date: 20090611
  Transmission Date: 20091009
  Serious: Yes (Hospitalization, Other)
  Sender: FDA-Public Use
  Company Number: DE-ABBOTT-09P-062-0579600-00

PATIENT
  Sex: Female
  Weight: 54 kg

DRUGS (5)
  1. HUMIRA [Suspect]
     Indication: CROHN'S DISEASE
     Dosage: 160 MG WEEK 280 MG
     Route: 058
     Dates: start: 20090212
  2. HUMIRA [Suspect]
     Dosage: 80MG
     Route: 058
     Dates: start: 20090226
  3. ANTIBIOTICS [Concomitant]
     Indication: PREMEDICATION
  4. AZATHIOPRINE [Concomitant]
     Indication: CROHN'S DISEASE
     Dosage: 2-2.5 MG/KG
     Dates: start: 20090401
  5. PREDNISOLONE [Concomitant]
     Indication: CROHN'S DISEASE

REACTIONS (6)
  - ILEAL STENOSIS [None]
  - ILEITIS [None]
  - INFLAMMATION [None]
  - INFLUENZA LIKE ILLNESS [None]
  - INTESTINAL MASS [None]
  - POSTOPERATIVE THROMBOSIS [None]
